FAERS Safety Report 23185414 (Version 1)
Quarter: 2023Q4

REPORT INFORMATION
  Report Type: Report from Study
  Country: US (occurrence: US)
  Receive Date: 20231115
  Receipt Date: 20231115
  Transmission Date: 20240110
  Serious: Yes (Other)
  Sender: FDA-Public Use
  Company Number: US-TAKEDA-2023TUS109688

PATIENT
  Sex: Male

DRUGS (1)
  1. VEDOLIZUMAB [Suspect]
     Active Substance: VEDOLIZUMAB
     Indication: Colitis ulcerative
     Dosage: UNK
     Route: 065

REACTIONS (8)
  - Rectal haemorrhage [Unknown]
  - Defaecation urgency [Unknown]
  - Anal incontinence [Unknown]
  - Diarrhoea [Unknown]
  - Frequent bowel movements [Unknown]
  - Weight decreased [Unknown]
  - Abdominal pain [Unknown]
  - Fatigue [Unknown]
